FAERS Safety Report 16378524 (Version 2)
Quarter: 2019Q2

REPORT INFORMATION
  Report Type: Spontaneous
  Country: GB (occurrence: GB)
  Receive Date: 20190531
  Receipt Date: 20190611
  Transmission Date: 20190711
  Serious: Yes (Other)
  Sender: FDA-Public Use
  Company Number: GB-ASTRAZENECA-2019SE79688

PATIENT

DRUGS (8)
  1. CABAZITAXEL [Concomitant]
     Active Substance: CABAZITAXEL
  2. TAMOXIFEN [Suspect]
     Active Substance: TAMOXIFEN
     Route: 048
  3. RIBOCICLIB. [Concomitant]
     Active Substance: RIBOCICLIB
  4. LETROZOLE. [Concomitant]
     Active Substance: LETROZOLE
  5. PALBOCICLIB [Concomitant]
     Active Substance: PALBOCICLIB
  6. FULVESTRANT. [Suspect]
     Active Substance: FULVESTRANT
     Route: 030
  7. EXEMESTANE. [Concomitant]
     Active Substance: EXEMESTANE
  8. DENOSUMAB [Concomitant]
     Active Substance: DENOSUMAB

REACTIONS (9)
  - Pericardial effusion [Unknown]
  - Metastases to liver [Unknown]
  - Metastases to bone [Unknown]
  - Malignant neoplasm progression [Unknown]
  - Neutropenia [Unknown]
  - Hepatic function abnormal [Unknown]
  - Lymphadenopathy [Unknown]
  - Metastasis [Unknown]
  - Nodule [Recovered/Resolved]

NARRATIVE: CASE EVENT DATE: 201703
